FAERS Safety Report 5799324-5 (Version None)
Quarter: 2008Q3

REPORT INFORMATION
  Report Type: 
  Country: None (occurrence: None)
  Receive Date: 20080702
  Receipt Date: 20080623
  Transmission Date: 20090109
  Serious: Yes (Hospitalization, Other)
  Sender: FDA-Public Use
  Company Number: US-PFIZER INC-2008052605

PATIENT
  Sex: Female

DRUGS (12)
  1. PREDNISONE 50MG TAB [Suspect]
  2. ETANERCEPT [Suspect]
     Indication: RHEUMATOID ARTHRITIS
     Route: 058
     Dates: start: 20060522, end: 20060831
  3. ETANERCEPT [Suspect]
     Route: 058
     Dates: start: 20061121, end: 20061121
  4. ETANERCEPT [Suspect]
     Route: 058
  5. METHOTREXATE [Concomitant]
     Dates: start: 20060805, end: 20060822
  6. PLAQUENIL [Concomitant]
  7. OLMESARTAN MEDOXOMIL [Concomitant]
  8. MULTI-VITAMINS [Concomitant]
  9. TOPROL-XL [Concomitant]
  10. OMEPRAZOLE [Concomitant]
  11. TRAMADOL HCL [Concomitant]
  12. OS-CAL [Concomitant]

REACTIONS (14)
  - ATRIAL TACHYCARDIA [None]
  - DEEP VEIN THROMBOSIS [None]
  - DYSPNOEA [None]
  - ECCHYMOSIS [None]
  - EYE HAEMORRHAGE [None]
  - FATIGUE [None]
  - FEELING JITTERY [None]
  - GASTROINTESTINAL HAEMORRHAGE [None]
  - HEPATOMEGALY [None]
  - HYPERTENSION [None]
  - INFECTED CYST [None]
  - PULMONARY EMBOLISM [None]
  - SPINAL FRACTURE [None]
  - TREMOR [None]
